FAERS Safety Report 7398758-5 (Version None)
Quarter: 2011Q2

REPORT INFORMATION
  Report Type: 
  Country: None (occurrence: None)
  Receive Date: 20110401
  Receipt Date: 20110401
  Transmission Date: 20111010
  Serious: Yes (Life-Threatening, Disabling, Other)
  Sender: FDA-Public Use
  Company Number: None

PATIENT
  Age: 41 Year
  Sex: Male
  Weight: 86.1834 kg

DRUGS (4)
  1. PAXIL [Suspect]
     Indication: STRESS
     Dosage: 1 20MG. TABLET ONCE A DAY PO
     Route: 048
     Dates: start: 19930701, end: 20110217
  2. PAXIL [Suspect]
     Indication: ANXIETY
     Dosage: 1 20MG. TABLET ONCE A DAY PO
     Route: 048
     Dates: start: 19930701, end: 20110217
  3. KLONOPIN [Suspect]
     Indication: ANXIETY
     Dosage: 1 1MG. TABLET ONCE A DAY PO
     Route: 048
     Dates: start: 19930701, end: 20110217
  4. KLONOPIN [Suspect]
     Indication: STRESS
     Dosage: 1 1MG. TABLET ONCE A DAY PO
     Route: 048
     Dates: start: 19930701, end: 20110217

REACTIONS (2)
  - VISUAL IMPAIRMENT [None]
  - DRUG WITHDRAWAL SYNDROME [None]
